FAERS Safety Report 6206036-2 (Version None)
Quarter: 2009Q2

REPORT INFORMATION
  Report Type: 
  Country: None (occurrence: None)
  Receive Date: 20090528
  Receipt Date: 20090522
  Transmission Date: 20091009
  Serious: Yes (Other)
  Sender: FDA-Public Use
  Company Number: US-ELI_LILLY_AND_COMPANY-US200905005375

PATIENT
  Sex: Female

DRUGS (4)
  1. HUMALOG [Suspect]
     Indication: TYPE 1 DIABETES MELLITUS
     Dates: start: 20090501
  2. HUMALOG [Suspect]
     Dates: end: 20090501
  3. LANTUS [Concomitant]
  4. GLOBIN INSULIN [Concomitant]

REACTIONS (3)
  - BLOOD GLUCOSE INCREASED [None]
  - RETINAL DETACHMENT [None]
  - STRESS [None]
